FAERS Safety Report 9486819 (Version 4)
Quarter: 2013Q3

REPORT INFORMATION
  Report Type: Spontaneous
  Country: JP (occurrence: JP)
  Receive Date: 20130829
  Receipt Date: 20130918
  Transmission Date: 20140515
  Serious: Yes (Life-Threatening, Hospitalization, Other)
  Sender: FDA-Public Use
  Company Number: JP-PFIZER INC-2013247122

PATIENT
  Age: 78 Year
  Sex: Female
  Weight: 46.1 kg

DRUGS (10)
  1. ANCARON [Suspect]
     Indication: VENTRICULAR TACHYCARDIA
     Dosage: 200 MG, 2X/DAY
     Route: 048
     Dates: start: 20101015, end: 20101224
  2. PREDNISOLONE [Suspect]
     Indication: CARDIAC SARCOIDOSIS
     Dosage: 30 MG, 2X/DAY
     Route: 065
     Dates: start: 20100830
  3. PREDNISOLONE [Suspect]
     Dosage: 25 MG, DAILY
     Route: 065
     Dates: start: 201009
  4. PREDNISOLONE [Suspect]
     Dosage: 2.5 MG, DAILY
  5. ANCARON [Suspect]
     Indication: VENTRICULAR TACHYCARDIA
     Dosage: 1.25 MG/ML, 10 ML/MIN
     Route: 042
     Dates: start: 20101015, end: 20101015
  6. ANCARON [Suspect]
     Dosage: 1.5 MG/ML, 33 ML/HR
     Route: 042
     Dates: start: 20101015, end: 20101015
  7. LASIX [Concomitant]
     Indication: CARDIAC FAILURE
     Dosage: 20 MG, 1X/DAY
     Route: 048
     Dates: start: 20100816
  8. ALDACTONE-A [Concomitant]
     Indication: CARDIAC FAILURE
     Dosage: 25 MG, 1X/DAY
     Route: 048
     Dates: start: 20100816
  9. GASMOTIN [Concomitant]
     Indication: GASTRITIS
     Dosage: 5 MG, 3X/DAY
     Route: 048
     Dates: start: 20100816
  10. PARIET [Concomitant]
     Indication: GASTROOESOPHAGEAL REFLUX DISEASE
     Dosage: 10 MG, 1X/DAY
     Route: 048
     Dates: start: 20100816

REACTIONS (7)
  - Ventricular tachycardia [Recovered/Resolved]
  - Cardiac failure [Recovering/Resolving]
  - Interstitial lung disease [Recovering/Resolving]
  - Mental disorder [Unknown]
  - Insomnia [Unknown]
  - Malaise [Unknown]
  - Decreased appetite [Unknown]
